FAERS Safety Report 13803109 (Version 2)
Quarter: 2017Q3

REPORT INFORMATION
  Report Type: Spontaneous
  Country: US (occurrence: US)
  Receive Date: 20170728
  Receipt Date: 20170801
  Transmission Date: 20171127
  Serious: No
  Sender: FDA-Public Use
  Company Number: US-TEVA-792306ACC

PATIENT
  Sex: Female

DRUGS (8)
  1. TEGRETOL [Concomitant]
     Active Substance: CARBAMAZEPINE
  2. PROZAC [Concomitant]
     Active Substance: FLUOXETINE HYDROCHLORIDE
  3. VITAMIN D3 [Concomitant]
     Active Substance: CHOLECALCIFEROL
  4. METOPROLOL. [Concomitant]
     Active Substance: METOPROLOL
     Dosage: ER, TOOK BEFORE SWITCHING TO LOPRESSOR
  5. SYNTHROID [Concomitant]
     Active Substance: LEVOTHYROXINE SODIUM
  6. LOPRESSOR [Concomitant]
     Active Substance: METOPROLOL TARTRATE
     Dates: start: 20170712
  7. COPAXONE [Suspect]
     Active Substance: GLATIRAMER ACETATE
     Indication: MULTIPLE SCLEROSIS
     Dosage: SOLUTION
     Route: 058
     Dates: start: 20170425
  8. IRON [Concomitant]
     Active Substance: IRON

REACTIONS (2)
  - Heart rate increased [Unknown]
  - Flushing [Unknown]
